FAERS Safety Report 5508563-X (Version None)
Quarter: 2007Q4

REPORT INFORMATION
  Report Type: 
  Country: None (occurrence: None)
  Receive Date: 20071105
  Receipt Date: 20071025
  Transmission Date: 20080405
  Serious: No
  Sender: FDA-Public Use
  Company Number: 1-15460103

PATIENT
  Sex: Male

DRUGS (1)
  1. ABBOKINASE [Suspect]
     Indication: VASCULAR OCCLUSION
     Dosage: INTRAVENOUS
     Route: 042

REACTIONS (4)
  - CEREBRAL HAEMORRHAGE [None]
  - EMBOLIC CEREBRAL INFARCTION [None]
  - METASTASES TO HEART [None]
  - TUMOUR EMBOLISM [None]
